FAERS Safety Report 8904657 (Version 1)
Quarter: 2012Q4

REPORT INFORMATION
  Report Type: 
  Country: US (occurrence: US)
  Receive Date: 20121113
  Receipt Date: 20121113
  Transmission Date: 20130627
  Serious: No
  Sender: FDA-Public Use
  Company Number: US-GLAXOSMITHKLINE-A0949345A

PATIENT
  Sex: Female

DRUGS (1)
  1. COREG [Suspect]
     Dosage: 12.5MG Twice per day
     Route: 048
     Dates: start: 2011

REACTIONS (1)
  - Hypertriglyceridaemia [Unknown]
